FAERS Safety Report 8998756 (Version 2)
Quarter: 2013Q1

REPORT INFORMATION
  Report Type: Spontaneous
  Country: AU (occurrence: AU)
  Receive Date: 20130103
  Receipt Date: 20130222
  Transmission Date: 20140127
  Serious: Yes (Hospitalization)
  Sender: FDA-Public Use
  Company Number: AU-BIOGENIDEC-2012BI064017

PATIENT
  Age: 40 Year
  Sex: Female

DRUGS (9)
  1. TYSABRI [Suspect]
     Indication: SECONDARY PROGRESSIVE MULTIPLE SCLEROSIS
     Route: 042
     Dates: start: 20090529
  2. SERTRALINE [Concomitant]
     Indication: DEPRESSION
     Route: 048
     Dates: start: 20110720
  3. FRUSEMIDE [Concomitant]
     Route: 048
     Dates: start: 20100615
  4. OXYCONTIN [Concomitant]
     Indication: PAIN
     Route: 048
     Dates: start: 20100224
  5. OXYNORM [Concomitant]
     Indication: PAIN
     Route: 048
     Dates: start: 20100224
  6. COLOXYL [Concomitant]
     Indication: CONSTIPATION
     Route: 048
     Dates: start: 20091028
  7. DUPHALAC [Concomitant]
     Indication: CONSTIPATION
     Dates: start: 20091028
  8. BACLOFEN [Concomitant]
     Indication: MUSCLE SPASMS
     Route: 048
     Dates: start: 20090513
  9. DIAZEPAM [Concomitant]
     Indication: MUSCLE SPASMS
     Route: 048
     Dates: start: 20090513

REACTIONS (2)
  - Muscle spasticity [Recovered/Resolved with Sequelae]
  - Pain [Recovered/Resolved with Sequelae]
